FAERS Safety Report 5875974-2 (Version None)
Quarter: 2008Q3

REPORT INFORMATION
  Report Type: 
  Country: None (occurrence: None)
  Receive Date: 20080908
  Receipt Date: 20080908
  Transmission Date: 20090109
  Serious: Yes (Life-Threatening, Hospitalization, Disabling)
  Sender: FDA-Public Use
  Company Number: None

PATIENT
  Age: 77 Year
  Sex: Male
  Weight: 113.3993 kg

DRUGS (2)
  1. VANCOMYCIN HYDROCHLORIDE [Suspect]
     Indication: INFECTION
     Dates: start: 20080816, end: 20080817
  2. VANCOMYCIN HYDROCHLORIDE [Suspect]
     Indication: BLOOD DISORDER
     Dates: start: 20080803, end: 20080904

REACTIONS (6)
  - CATHETER RELATED INFECTION [None]
  - DISORIENTATION [None]
  - DRUG LEVEL INCREASED [None]
  - ESCHERICHIA INFECTION [None]
  - RENAL FAILURE [None]
  - RESPIRATORY ARREST [None]
